FAERS Safety Report 9691577 (Version 2)
Quarter: 2013Q4

REPORT INFORMATION
  Report Type: Report from Study
  Country: CA (occurrence: CA)
  Receive Date: 20131115
  Receipt Date: 20131127
  Transmission Date: 20140711
  Serious: Yes (Hospitalization)
  Sender: FDA-Public Use
  Company Number: CA-ABBVIE-13P-028-1169775-00

PATIENT
  Age: 41 Year
  Sex: Male

DRUGS (6)
  1. HUMIRA [Suspect]
     Indication: CROHN^S DISEASE
     Route: 058
     Dates: start: 20130807, end: 20131002
  2. PREDNISONE [Concomitant]
     Indication: CROHN^S DISEASE
     Dosage: TAPERING DOSE, WAS AT 20 MG BEFORE ADMISSION
  3. PANTOPRAZOLE [Concomitant]
     Indication: PRODUCT USED FOR UNKNOWN INDICATION
     Route: 048
  4. VITAMIN D [Concomitant]
     Indication: PRODUCT USED FOR UNKNOWN INDICATION
     Route: 048
  5. CALCIUM [Concomitant]
     Indication: PRODUCT USED FOR UNKNOWN INDICATION
     Route: 048
  6. FERROUS GLUCONATE [Concomitant]
     Indication: PRODUCT USED FOR UNKNOWN INDICATION
     Route: 048

REACTIONS (6)
  - Frequent bowel movements [Recovered/Resolved]
  - Crohn^s disease [Recovered/Resolved]
  - Vomiting [Unknown]
  - Hypophagia [Unknown]
  - Fluid intake reduced [Unknown]
  - Gastric ulcer [Unknown]
